FAERS Safety Report 13979925 (Version 1)
Quarter: 2017Q3

REPORT INFORMATION
  Report Type: Spontaneous
  Country: US (occurrence: US)
  Receive Date: 20170914
  Receipt Date: 20170914
  Transmission Date: 20171128
  Serious: Yes (Other)
  Sender: FDA-Public Use
  Company Number: US-ASTELLAS-2017US026553

PATIENT
  Age: 82 Year
  Sex: Male

DRUGS (3)
  1. XTANDI [Suspect]
     Active Substance: ENZALUTAMIDE
     Indication: NEOPLASM PROSTATE
     Route: 048
     Dates: start: 20170405, end: 20170630
  2. ABIRATERONE [Suspect]
     Active Substance: ABIRATERONE
     Indication: NEOPLASM PROSTATE
     Dosage: UNK, UNKNOWN FREQ.
     Route: 065
  3. LUPRON [Suspect]
     Active Substance: LEUPROLIDE ACETATE
     Indication: NEOPLASM PROSTATE
     Dosage: UNK, UNKNOWN FREQ.
     Route: 065

REACTIONS (3)
  - Malignant neoplasm progression [Unknown]
  - Prostatic specific antigen increased [Unknown]
  - Drug ineffective [Unknown]

NARRATIVE: CASE EVENT DATE: 20170630
